FAERS Safety Report 25664668 (Version 1)
Quarter: 2025Q3

REPORT INFORMATION
  Report Type: Spontaneous
  Country: US (occurrence: None)
  Receive Date: 20250808
  Receipt Date: 20250808
  Transmission Date: 20251020
  Serious: Yes (unspecified)
  Sender: FDA-CTU
  Company Number: None

PATIENT
  Age: 53 Year
  Sex: Female

DRUGS (1)
  1. TREMFYA [Suspect]
     Active Substance: GUSELKUMAB
     Indication: Rheumatoid arthritis
     Route: 058
     Dates: start: 20250516, end: 20250619

REACTIONS (4)
  - Headache [None]
  - Dizziness [None]
  - Drug intolerance [None]
  - Therapy cessation [None]

NARRATIVE: CASE EVENT DATE: 20250705
